FAERS Safety Report 18079000 (Version 46)
Quarter: 2023Q1

REPORT INFORMATION
  Report Type: Spontaneous
  Country: GB (occurrence: GB)
  Receive Date: 20200728
  Receipt Date: 20230303
  Transmission Date: 20230417
  Serious: Yes (Death, Life-Threatening, Hospitalization, Disabling, Other)
  Sender: FDA-Public Use
  Company Number: None

PATIENT
  Age: 56 Year
  Sex: Male
  Weight: 92 kg

DRUGS (84)
  1. CLOZAPINE [Interacting]
     Active Substance: CLOZAPINE
     Indication: Schizophrenia
     Dosage: 8 MG, QD. STARTED ON 21-MAY-2020 AND END ON MAY-2020
     Route: 048
  2. SIMVASTATIN [Interacting]
     Active Substance: SIMVASTATIN
     Indication: Product used for unknown indication
     Dosage: 20 MILLIGRAM
     Route: 048
  3. OMEPRAZOLE [Interacting]
     Active Substance: OMEPRAZOLE
     Indication: Product used for unknown indication
     Dosage: 20 MILLIGRAM, BID
     Route: 048
  4. CARBOCYSTEINE [Interacting]
     Active Substance: CARBOCYSTEINE
     Indication: Rheumatoid arthritis
     Dosage: 750 MILLIGRAM, ONCE A DAY
  5. CIPROFLOXACIN [Interacting]
     Active Substance: CIPROFLOXACIN
     Indication: Rheumatoid arthritis
     Dosage: 1000 MG, DAILY
     Route: 048
  6. IRBESARTAN [Interacting]
     Active Substance: IRBESARTAN
     Indication: Abdominal discomfort
     Dosage: 150 G, DAILY
     Dates: start: 20100912
  7. METHOTREXATE SODIUM [Interacting]
     Active Substance: METHOTREXATE SODIUM
     Indication: Rheumatoid arthritis
     Dosage: 17.5 MG, WEEKLY
     Dates: start: 20100917
  8. TAMSULOSIN HYDROCHLORIDE [Interacting]
     Active Substance: TAMSULOSIN HYDROCHLORIDE
     Indication: Product used for unknown indication
     Dosage: 400 MICROGRAM
  9. FOLIC ACID [Interacting]
     Active Substance: FOLIC ACID
     Indication: Product used for unknown indication
     Dosage: 5 MG, QD
     Route: 048
  10. VENLAFAXINE [Interacting]
     Active Substance: VENLAFAXINE HYDROCHLORIDE
     Indication: Rheumatoid arthritis
     Dosage: 225 MG, DAILY, ONCE A DAY, PROLONGED RELEASE
  11. SOLIFENACIN SUCCINATE [Interacting]
     Active Substance: SOLIFENACIN SUCCINATE
     Indication: Product used for unknown indication
     Route: 048
  12. TRIMETHOPRIM [Interacting]
     Active Substance: TRIMETHOPRIM
     Indication: Urinary tract infection
     Dosage: 200 MG, QD
     Route: 048
     Dates: start: 20191018, end: 20191020
  13. CLOZARIL [Interacting]
     Active Substance: CLOZAPINE
     Indication: Schizophrenia
     Dosage: UNK
     Route: 048
     Dates: start: 20090403
  14. DEXAMETHASONE [Interacting]
     Active Substance: DEXAMETHASONE
     Indication: Radiotherapy
     Dosage: 2 MILLIGRAM, STARTED ON MAY-2020 AND END ON 28-MAY-2020
     Route: 048
     Dates: start: 20200521, end: 20200528
  15. FOLIC ACID [Interacting]
     Active Substance: FOLIC ACID
     Indication: Product used for unknown indication
     Dosage: 5 MILLIGRAM, TABLET
     Route: 048
  16. GUANIDINE [Interacting]
     Active Substance: GUANIDINE
     Indication: Abdominal discomfort
     Dosage: 750 MILLIGRAM, ONCE A DAY
     Route: 048
  17. ZINC [Interacting]
     Active Substance: ZINC
     Indication: Abdominal discomfort
     Dosage: 750 MILLIGRAM, DAILY
  18. CARBAMAZEPINE [Interacting]
     Active Substance: CARBAMAZEPINE
     Indication: Product used for unknown indication
     Dosage: 750 MG, QD
     Route: 048
  19. ENBREL [Interacting]
     Active Substance: ETANERCEPT
     Indication: Rheumatoid arthritis
     Dosage: 50 MILLIGRAM, Q.W., WEEKLY, SOLUTION FOR INJECTION IN PRE-FILLED PEN, MYCLIC?PENS
     Dates: start: 20100917
  20. PHYLLOCONTIN [Interacting]
     Active Substance: AMINOPHYLLINE
     Indication: Product used for unknown indication
     Dosage: 400 MG, DAILY, QD
     Dates: start: 20100917
  21. VENLAFAXINE HYDROCHLORIDE [Interacting]
     Active Substance: VENLAFAXINE HYDROCHLORIDE
     Indication: Depression
  22. DITIOCARB SODIUM [Interacting]
     Active Substance: DITIOCARB SODIUM
     Indication: Abdominal discomfort
     Dosage: 750 MG. UNK
  23. SULFAGUANIDINE [Interacting]
     Active Substance: SULFAGUANIDINE
     Indication: Product used for unknown indication
     Route: 048
  24. COVID-19 VACCINE NOS [Interacting]
     Active Substance: COVID-19 VACCINE NOS
     Indication: COVID-19 prophylaxis
     Route: 030
  25. DOMPERIDONE [Interacting]
     Active Substance: DOMPERIDONE
     Indication: Product used for unknown indication
     Route: 048
  26. BENDROFLUMETHIAZIDE [Concomitant]
     Active Substance: BENDROFLUMETHIAZIDE
     Indication: Depression
  27. CABERGOLINE [Concomitant]
     Active Substance: CABERGOLINE
     Indication: Pituitary tumour
  28. ACTIVATED CHARCOAL [Concomitant]
     Active Substance: ACTIVATED CHARCOAL
  29. CETIRIZINE [Concomitant]
     Active Substance: CETIRIZINE HYDROCHLORIDE
     Indication: Abdominal discomfort
  30. EZETIMIBE [Concomitant]
     Active Substance: EZETIMIBE
     Indication: Product used for unknown indication
  31. FOLIC ACID [Concomitant]
     Active Substance: FOLIC ACID
     Dosage: 5 MILLIGRAM (5 MILLIGRAM (ORAL SOLUTION)
     Route: 048
  32. LEVOTHYROXINE [Concomitant]
     Active Substance: LEVOTHYROXINE
     Indication: Product used for unknown indication
  33. ORUVAIL [Concomitant]
     Active Substance: KETOPROFEN
     Indication: Empty sella syndrome
  34. BECLOMETHASONE DIPROPIONATE [Concomitant]
     Active Substance: BECLOMETHASONE DIPROPIONATE
     Indication: Product used for unknown indication
     Dates: start: 20190102
  35. DULOXETINE [Concomitant]
     Active Substance: DULOXETINE
     Indication: Product used for unknown indication
  36. PHYLLOCONTIN [Interacting]
     Active Substance: AMINOPHYLLINE
     Indication: Product used for unknown indication
     Dosage: 400 MG, DAILY
     Dates: start: 20100917
  37. BENDROFLUMETHIAZIDE [Concomitant]
     Active Substance: BENDROFLUMETHIAZIDE
     Indication: Pituitary tumour
  38. LEVOTHYROXINE [Concomitant]
     Active Substance: LEVOTHYROXINE
     Indication: Abdominal discomfort
  39. ZINC [Interacting]
     Active Substance: ZINC
     Indication: Depression
  40. CABERGOLINE [Concomitant]
     Active Substance: CABERGOLINE
     Indication: Empty sella syndrome
  41. CLOZAPINE [Interacting]
     Active Substance: CLOZAPINE
     Indication: Schizophrenia
     Route: 048
     Dates: start: 20090403
  42. DEXAMETHASONE [Interacting]
     Active Substance: DEXAMETHASONE
     Indication: Product used for unknown indication
     Route: 048
  43. CLOZARIL [Interacting]
     Active Substance: CLOZAPINE
     Indication: Schizophrenia
     Dosage: 2 MILLIGRAM, ONCE A DAY
     Dates: start: 202005, end: 20200528
  44. DEXAMETHASONE [Interacting]
     Active Substance: DEXAMETHASONE
     Indication: Radiotherapy
     Dosage: 8 MILLIGRAM
     Route: 048
     Dates: start: 20200521, end: 202005
  45. CLOZARIL [Interacting]
     Active Substance: CLOZAPINE
     Indication: Schizophrenia
     Dosage: UNK
     Route: 048
     Dates: start: 20200403
  46. OMEPRAZOLE [Interacting]
     Active Substance: OMEPRAZOLE
     Indication: Product used for unknown indication
     Dosage: 20 MG, 2X/DAY FOR STOMACH
     Route: 048
  47. OMEPRAZOLE [Interacting]
     Active Substance: OMEPRAZOLE
     Indication: Product used for unknown indication
     Dosage: 20 MILLIGRAM, BID
     Route: 048
  48. DEXAMETHASONE [Interacting]
     Active Substance: DEXAMETHASONE
     Indication: Radiotherapy
     Dosage: 8 MILLIGRAM
     Route: 048
     Dates: start: 20200521, end: 20200528
  49. OMEPRAZOLE [Interacting]
     Active Substance: OMEPRAZOLE
     Indication: Product used for unknown indication
     Dosage: 12 MG, BID
     Route: 048
  50. SIMVASTATIN [Interacting]
     Active Substance: SIMVASTATIN
     Indication: Product used for unknown indication
     Route: 048
  51. DEXAMETHASONE [Interacting]
     Active Substance: DEXAMETHASONE
     Indication: Radiotherapy to pharynx
     Dosage: 8 MILLIGRAM, QD
     Route: 048
     Dates: start: 20200515, end: 202005
  52. CLOZARIL [Interacting]
     Active Substance: CLOZAPINE
     Indication: Schizophrenia
     Dosage: 8 MG, QD
     Route: 048
     Dates: start: 20200521, end: 202005
  53. OMEPRAZOLE [Interacting]
     Active Substance: OMEPRAZOLE
     Indication: Product used for unknown indication
     Dosage: 12 MG, BID
     Route: 048
  54. FOLIC ACID [Interacting]
     Active Substance: FOLIC ACID
     Indication: Product used for unknown indication
     Dosage: 5 MILLIGRAM (5 MILLIGRAM (ORAL SOLUTION))
     Route: 048
  55. DEXAMETHASONE [Interacting]
     Active Substance: DEXAMETHASONE
     Indication: Radiotherapy
     Dosage: 8 MILLIGRAM, ONCE A DAY
     Route: 048
     Dates: start: 202005, end: 20200528
  56. DEXAMETHASONE [Interacting]
     Active Substance: DEXAMETHASONE
     Indication: Radiotherapy
     Dosage: 2 MILLIGRAM, ONCE A DAY
     Route: 048
     Dates: start: 202005, end: 20200528
  57. FOLIC ACID [Interacting]
     Active Substance: FOLIC ACID
     Indication: Product used for unknown indication
     Dosage: 5 MILLIGRAM, TABLET
     Route: 048
  58. OMEPRAZOLE [Interacting]
     Active Substance: OMEPRAZOLE
     Indication: Product used for unknown indication
     Dosage: 400 MICROGRAM
     Route: 048
  59. OMEPRAZOLE [Interacting]
     Active Substance: OMEPRAZOLE
     Indication: Product used for unknown indication
     Dosage: 12 MILLIGRAM, BID
     Route: 048
  60. CLOZARIL [Interacting]
     Active Substance: CLOZAPINE
     Indication: Product used for unknown indication
     Dosage: 400 MG
     Route: 048
     Dates: start: 20200403
  61. OMEPRAZOLE [Interacting]
     Active Substance: OMEPRAZOLE
     Indication: Product used for unknown indication
     Route: 048
  62. DEXAMETHASONE [Interacting]
     Active Substance: DEXAMETHASONE
     Indication: Product used for unknown indication
     Route: 048
     Dates: start: 202005
  63. DEXAMETHASONE [Interacting]
     Active Substance: DEXAMETHASONE
     Indication: Radiotherapy to pharynx
     Dosage: 8 MG, QD
     Route: 048
     Dates: start: 20200528
  64. CARBOCYSTEINE [Interacting]
     Active Substance: CARBOCYSTEINE
     Indication: Rheumatoid arthritis
     Dosage: 750 MILLIGRAM, ONCE A DAY
     Dates: start: 20100917
  65. CIPROFLOXACIN [Interacting]
     Active Substance: CIPROFLOXACIN
     Indication: Abdominal discomfort
     Route: 048
  66. CIPROFLOXACIN [Interacting]
     Active Substance: CIPROFLOXACIN
     Indication: Depression
     Dosage: 1000 MG, DAILY
     Route: 048
  67. CIPROFLOXACIN [Interacting]
     Active Substance: CIPROFLOXACIN
     Indication: Abdominal discomfort
     Dosage: 1000 MG, DAILY
     Route: 048
     Dates: start: 20100917
  68. GUANIDINE [Interacting]
     Active Substance: GUANIDINE
     Indication: Product used for unknown indication
     Dosage: 1,3-DIPHENYLGUANIDINE
     Route: 048
  69. IRBESARTAN [Interacting]
     Active Substance: IRBESARTAN
     Indication: Abdominal discomfort
     Dosage: 150 G, DAILY, QD
     Dates: start: 20100917
  70. METHOTREXATE SODIUM [Interacting]
     Active Substance: METHOTREXATE SODIUM
     Indication: Product used for unknown indication
     Dosage: WEEKLY, QW (AT 17.5, WEEKLY)
     Dates: start: 20100917
  71. METHOTREXATE SODIUM [Interacting]
     Active Substance: METHOTREXATE SODIUM
     Indication: Rheumatoid arthritis
     Dosage: 17.5 MILLIGRAM, Q.W., UNK UNK, Q.W., WEEKLY, AT 17.5 (UNKNOWN UNIT)
     Dates: start: 20100917
  72. VENLAFAXINE HYDROCHLORIDE [Interacting]
     Active Substance: VENLAFAXINE HYDROCHLORIDE
     Indication: Rheumatoid arthritis
     Dosage: 225 MG, DAILY, ONCE A DAY, PROLONGED RELEASE
  73. DEXAMETHASONE [Interacting]
     Active Substance: DEXAMETHASONE
     Indication: Radiotherapy to pharynx
     Dosage: 8 MG, QD
     Route: 048
     Dates: start: 20200528, end: 20200528
  74. GUANIDINE [Interacting]
     Active Substance: GUANIDINE
     Indication: Depression
     Route: 048
  75. DEXAMETHASONE [Interacting]
     Active Substance: DEXAMETHASONE
     Indication: Abdominal discomfort
     Dosage: 8 MG, QD (ORAL SOLUTION)
     Route: 048
     Dates: end: 20200528
  76. CLOZARIL [Interacting]
     Active Substance: CLOZAPINE
     Indication: Schizophrenia
     Dosage: 8 MG, QD
     Route: 048
     Dates: start: 202005
  77. CLOZARIL [Interacting]
     Active Substance: CLOZAPINE
     Indication: Product used for unknown indication
     Dosage: 20 MG, BID
     Route: 048
  78. CLOZARIL [Interacting]
     Active Substance: CLOZAPINE
     Indication: Product used for unknown indication
     Dosage: 40 MG, QD
     Route: 048
  79. DEXAMETHASONE [Interacting]
     Active Substance: DEXAMETHASONE
     Indication: Radiotherapy
     Dosage: 2 MILLIGRAM, STARTED ON MAY-2020 AND END ON 28-MAY-2020
     Route: 048
     Dates: start: 20200521, end: 20200528
  80. DEXAMETHASONE [Interacting]
     Active Substance: DEXAMETHASONE
     Indication: Product used for unknown indication
     Dosage: 2 MG, QD
     Route: 048
     Dates: start: 20200528
  81. DEXAMETHASONE [Interacting]
     Active Substance: DEXAMETHASONE
     Indication: Product used for unknown indication
     Dosage: 26 MG
     Route: 048
  82. DITIOCARB SODIUM [Interacting]
     Active Substance: DITIOCARB SODIUM
     Indication: Product used for unknown indication
  83. CLOZARIL [Interacting]
     Active Substance: CLOZAPINE
     Indication: Schizophrenia
     Dosage: UNK
     Route: 048
     Dates: start: 20090403
  84. CLOZAPINE [Interacting]
     Active Substance: CLOZAPINE
     Indication: Schizophrenia
     Route: 048
     Dates: start: 20200403

REACTIONS (37)
  - Pulmonary pain [Fatal]
  - Radiation inflammation [Fatal]
  - Lung neoplasm malignant [Fatal]
  - Condition aggravated [Fatal]
  - Inflammation [Fatal]
  - Schizophrenia [Fatal]
  - Intentional product misuse [Fatal]
  - Product dose omission issue [Fatal]
  - Drug abuse [Fatal]
  - Rash [Fatal]
  - Arthropathy [Fatal]
  - Knee arthroplasty [Fatal]
  - Abdominal discomfort [Fatal]
  - Lower respiratory tract infection [Fatal]
  - Overdose [Fatal]
  - COVID-19 [Fatal]
  - Off label use [Fatal]
  - Illness [Recovering/Resolving]
  - Malaise [Unknown]
  - Peripheral swelling [Unknown]
  - Genital pain [Recovered/Resolved]
  - Feeling abnormal [Unknown]
  - Diarrhoea [Recovered/Resolved]
  - Abdominal pain [Recovered/Resolved]
  - Dementia [Unknown]
  - Nightmare [Not Recovered/Not Resolved]
  - Contusion [Not Recovered/Not Resolved]
  - Food poisoning [Not Recovered/Not Resolved]
  - Mucosal inflammation [Recovered/Resolved]
  - Genital ulceration [Recovered/Resolved]
  - Abdominal pain upper [Recovering/Resolving]
  - Gastrointestinal pain [Not Recovered/Not Resolved]
  - Oral pain [Recovering/Resolving]
  - Blood potassium decreased [Unknown]
  - Vomiting [Unknown]
  - Drug interaction [Unknown]
  - Irritable bowel syndrome [Unknown]

NARRATIVE: CASE EVENT DATE: 20190121
